FAERS Safety Report 12421348 (Version 1)
Quarter: 2016Q2

REPORT INFORMATION
  Report Type: Spontaneous
  Country: BR (occurrence: BR)
  Receive Date: 20160531
  Receipt Date: 20160531
  Transmission Date: 20160815
  Serious: Yes (Hospitalization, Other)
  Sender: FDA-Public Use
  Company Number: BR-JNJFOC-20160525890

PATIENT
  Age: 28 Year
  Sex: Female

DRUGS (1)
  1. ORTHO EVRA [Suspect]
     Active Substance: ETHINYL ESTRADIOL\NORELGESTROMIN
     Indication: PRODUCT USED FOR UNKNOWN INDICATION
     Route: 062
     Dates: start: 2011

REACTIONS (5)
  - Fluid retention [Unknown]
  - Vaginal haemorrhage [Unknown]
  - Fallopian tube obstruction [Unknown]
  - Inappropriate schedule of drug administration [Unknown]
  - Infection [Unknown]

NARRATIVE: CASE EVENT DATE: 201108
